FAERS Safety Report 19497767 (Version 2)
Quarter: 2021Q3

REPORT INFORMATION
  Report Type: Spontaneous
  Country: US (occurrence: US)
  Receive Date: 20210706
  Receipt Date: 20210827
  Transmission Date: 20211014
  Serious: No
  Sender: FDA-Public Use
  Company Number: US-ASTRAZENECA-2021A536164

PATIENT
  Age: 26210 Day
  Sex: Female
  Weight: 77.1 kg

DRUGS (9)
  1. FIBER [Concomitant]
     Active Substance: PSYLLIUM HUSK
     Dosage: 2 A DAY
     Route: 048
  2. SYMAX SR [Concomitant]
     Active Substance: HYOSCYAMINE SULFATE
     Dosage: 0.375 ONE A DAY
     Route: 048
  3. VITAMIN D3 [Concomitant]
     Active Substance: CHOLECALCIFEROL
     Dosage: 2000 U ONCE A DAY
     Route: 065
  4. LOSARTAN. [Concomitant]
     Active Substance: LOSARTAN
     Dosage: 50 MG ONE A DAY
     Route: 048
  5. ATORVASTATIN [Concomitant]
     Active Substance: ATORVASTATIN
     Dosage: 20 MG DAILY
     Route: 048
  6. BYDUREON BCISE [Suspect]
     Active Substance: EXENATIDE
     Indication: TYPE 2 DIABETES MELLITUS
     Route: 058
  7. HYDROCHLOROTHIAZIDE. [Concomitant]
     Active Substance: HYDROCHLOROTHIAZIDE
     Dosage: 12.5 MG, UNKNOWN
     Route: 048
  8. BYDUREON [Suspect]
     Active Substance: EXENATIDE
     Indication: TYPE 2 DIABETES MELLITUS
     Route: 058
  9. IMIPRAMINE HCL [Concomitant]
     Active Substance: IMIPRAMINE HYDROCHLORIDE
     Dosage: 50 MG ONCE A DAY
     Route: 048

REACTIONS (4)
  - Device issue [Unknown]
  - Injection site mass [Unknown]
  - Incorrect dose administered by device [Not Recovered/Not Resolved]
  - Device leakage [Unknown]

NARRATIVE: CASE EVENT DATE: 20210616
